FAERS Safety Report 20773757 (Version 1)
Quarter: 2022Q2

REPORT INFORMATION
  Report Type: Spontaneous
  Country: CA (occurrence: None)
  Receive Date: 20220502
  Receipt Date: 20220502
  Transmission Date: 20220720
  Serious: Yes (Other)
  Sender: FDA-Public Use
  Company Number: CA-ROCHE-2923321

PATIENT
  Age: 77 Year
  Sex: Female

DRUGS (9)
  1. RITUXIMAB [Suspect]
     Active Substance: RITUXIMAB
     Indication: Rheumatoid arthritis
     Route: 041
  2. BENADRYL [Concomitant]
     Active Substance: DIPHENHYDRAMINE HYDROCHLORIDE
     Indication: Premedication
     Route: 048
  3. DILTIAZEM [Concomitant]
     Active Substance: DILTIAZEM
  4. HYDROCHLOROTHIAZIDE [Concomitant]
     Active Substance: HYDROCHLOROTHIAZIDE
  5. METFORMIN [Concomitant]
     Active Substance: METFORMIN HYDROCHLORIDE
  6. RAMIPRIL [Concomitant]
     Active Substance: RAMIPRIL
  7. SULFASALAZINE [Concomitant]
     Active Substance: SULFASALAZINE
  8. SULFASALAZINE [Concomitant]
     Active Substance: SULFASALAZINE
  9. TYLENOL [Concomitant]
     Active Substance: ACETAMINOPHEN
     Indication: Premedication
     Route: 048

REACTIONS (10)
  - Hypertension [Unknown]
  - Off label use [Unknown]
  - Drug ineffective [Unknown]
  - Arthralgia [Unknown]
  - Back pain [Unknown]
  - Diarrhoea [Unknown]
  - Fatigue [Unknown]
  - Gastrooesophageal reflux disease [Unknown]
  - Myalgia [Unknown]
  - Product prescribing issue [Unknown]
